FAERS Safety Report 9853480 (Version 1)
Quarter: 2014Q1

REPORT INFORMATION
  Report Type: Spontaneous
  Country: US (occurrence: US)
  Receive Date: 20140129
  Receipt Date: 20140129
  Transmission Date: 20141002
  Serious: Yes (Other)
  Sender: FDA-Public Use
  Company Number: US-WATSON-2014-00749

PATIENT
  Age: 80 Year
  Sex: Male

DRUGS (1)
  1. METHYLPREDNISOLONE (UNKNOWN) [Suspect]
     Indication: PRODUCT USED FOR UNKNOWN INDICATION
     Dosage: UNKNOWN, SINGLE
     Route: 008
     Dates: start: 20120912

REACTIONS (4)
  - Meningitis fungal [Recovered/Resolved]
  - Exserohilum infection [Unknown]
  - Transmission of an infectious agent via product [Recovered/Resolved]
  - Product contamination microbial [Unknown]
